FAERS Safety Report 8207241-6 (Version None)
Quarter: 2012Q1

REPORT INFORMATION
  Report Type: 
  Country: None (occurrence: None)
  Receive Date: 20120314
  Receipt Date: 20120310
  Transmission Date: 20120608
  Serious: No
  Sender: FDA-Public Use
  Company Number: US-PFIZER INC-2012063700

PATIENT
  Sex: Male
  Weight: 136 kg

DRUGS (6)
  1. PHENCYCLIDINE [Concomitant]
     Dosage: UNK
  2. PROCAINE [Concomitant]
     Indication: ARTHRALGIA
     Dosage: UNK
  3. HEROIN [Concomitant]
     Dosage: UNK
  4. VIAGRA [Suspect]
     Indication: ERECTILE DYSFUNCTION
     Dosage: (TWO 100MG) 200 MG, AS NEEDED
     Route: 048
     Dates: start: 20030101
  5. METHYLENEDIOXYMETHAMPHETAMINE [Concomitant]
     Dosage: UNK
  6. CANNABIS [Concomitant]
     Dosage: UNK

REACTIONS (1)
  - TESTICULAR SWELLING [None]
